FAERS Safety Report 9257951 (Version 1)
Quarter: 2013Q1

REPORT INFORMATION
  Report Type: Spontaneous
  Country: US (occurrence: None)
  Receive Date: 20121212
  Receipt Date: 20121212
  Transmission Date: 20140127
  Serious: No
  Sender: FDA-Public Use
  Company Number: 1207USA004414

PATIENT
  Age: 61 Year
  Sex: Female

DRUGS (3)
  1. VICTRELIS [Suspect]
     Indication: HEPATITIS C
     Route: 048
     Dates: start: 20120515
  2. RIBASPHERE [Suspect]
  3. PEGINTRON [Suspect]

REACTIONS (3)
  - Fatigue [None]
  - White blood cell disorder [None]
  - Red blood cell abnormality [None]
